FAERS Safety Report 10017347 (Version 1)
Quarter: 2014Q1

REPORT INFORMATION
  Report Type: Spontaneous
  Country: FR (occurrence: FR)
  Receive Date: 20140318
  Receipt Date: 20140318
  Transmission Date: 20141002
  Serious: Yes (Life-Threatening, Hospitalization)
  Sender: FDA-Public Use
  Company Number: FR-JNJFOC-20140302970

PATIENT
  Age: 43 Year
  Sex: Male

DRUGS (5)
  1. RISPERDAL [Suspect]
     Indication: BIPOLAR DISORDER
     Route: 048
     Dates: start: 20131105, end: 20131105
  2. DEPAKINE [Suspect]
     Indication: BIPOLAR DISORDER
     Dosage: 500 MG X 3
     Route: 048
     Dates: start: 20131105, end: 20131105
  3. DOLIPRANE [Suspect]
     Indication: PRODUCT USED FOR UNKNOWN INDICATION
     Route: 048
     Dates: start: 20131105, end: 20131105
  4. CITALOPRAM [Concomitant]
     Indication: MAJOR DEPRESSION
     Dosage: 20 HALF A TABLET PER DAY
     Route: 048
     Dates: end: 20131105
  5. ALCOHOL [Concomitant]
     Route: 065

REACTIONS (3)
  - Coma [Recovered/Resolved]
  - Toxicity to various agents [Unknown]
  - Pneumonia aspiration [Unknown]
